FAERS Safety Report 14505854 (Version 1)
Quarter: 2018Q1

REPORT INFORMATION
  Report Type: Spontaneous
  Country: PG (occurrence: PG)
  Receive Date: 20180208
  Receipt Date: 20180208
  Transmission Date: 20180509
  Serious: Yes (Other)
  Sender: FDA-Public Use
  Company Number: PG-JNJFOC-20180202749

PATIENT
  Age: 66 Year
  Sex: Female

DRUGS (10)
  1. PYRIDOXINE [Concomitant]
     Active Substance: PYRIDOXINE
     Indication: TUBERCULOSIS
     Route: 065
     Dates: start: 20160315
  2. PARA-AMINOSALICYLIC ACID [Concomitant]
     Active Substance: AMINOSALICYLIC ACID
     Indication: TUBERCULOSIS
     Route: 065
     Dates: start: 20160315
  3. AMOXI CLAV [Concomitant]
     Active Substance: AMOXICILLIN\CLAVULANATE POTASSIUM
     Indication: TUBERCULOSIS
     Route: 065
     Dates: start: 20160607
  4. LINEZOLID. [Concomitant]
     Active Substance: LINEZOLID
     Indication: TUBERCULOSIS
     Route: 065
     Dates: start: 20160426
  5. LEVOFLOXACIN. [Concomitant]
     Active Substance: LEVOFLOXACIN
     Indication: TUBERCULOSIS
     Route: 065
     Dates: start: 20160315
  6. TMC207 [Suspect]
     Active Substance: BEDAQUILINE
     Indication: TUBERCULOSIS
     Route: 048
  7. TMC207 [Suspect]
     Active Substance: BEDAQUILINE
     Indication: TUBERCULOSIS
     Route: 048
     Dates: start: 20170201, end: 20170719
  8. CLOFAZIMINE [Concomitant]
     Active Substance: CLOFAZIMINE
     Indication: TUBERCULOSIS
     Route: 065
     Dates: start: 20160516
  9. PYRAZINAMIDE. [Concomitant]
     Active Substance: PYRAZINAMIDE
     Indication: TUBERCULOSIS
     Route: 065
     Dates: start: 20160315
  10. CYCLOSERINE. [Concomitant]
     Active Substance: CYCLOSERINE
     Indication: TUBERCULOSIS
     Route: 065
     Dates: start: 20160315

REACTIONS (2)
  - Intentional product use issue [Recovered/Resolved]
  - Off label use [Recovered/Resolved]
